FAERS Safety Report 9637480 (Version 3)
Quarter: 2014Q1

REPORT INFORMATION
  Report Type: Report from Study
  Country: IL (occurrence: IL)
  Receive Date: 20131022
  Receipt Date: 20140102
  Transmission Date: 20141002
  Serious: Yes (Hospitalization)
  Sender: FDA-Public Use
  Company Number: IL-JNJFOC-20131011949

PATIENT
  Age: 54 Year
  Sex: Female

DRUGS (10)
  1. XARELTO [Suspect]
     Indication: DEEP VEIN THROMBOSIS
     Route: 048
     Dates: start: 20130929, end: 20131013
  2. XARELTO [Suspect]
     Indication: THROMBOSIS PROPHYLAXIS
     Route: 048
     Dates: start: 20130929, end: 20131013
  3. SIMVASTATIN [Concomitant]
     Route: 065
  4. PREDNISONE [Concomitant]
     Route: 065
  5. BISOPROLOL [Concomitant]
     Route: 065
  6. BISOPROLOL [Concomitant]
     Route: 065
     Dates: start: 20131014
  7. HEPARIN [Concomitant]
     Route: 065
     Dates: start: 20130926, end: 20130929
  8. HEPARIN [Concomitant]
     Dosage: 120 MG DAILY
     Route: 065
     Dates: start: 20131014
  9. HEPARIN [Concomitant]
     Route: 065
     Dates: start: 20131013, end: 20131013
  10. WARFARIN [Concomitant]
     Route: 065
     Dates: start: 20131013, end: 20131013

REACTIONS (3)
  - Urticaria [Not Recovered/Not Resolved]
  - Syncope [Not Recovered/Not Resolved]
  - Syncope [Not Recovered/Not Resolved]
